FAERS Safety Report 21331389 (Version 1)
Quarter: 2022Q3

REPORT INFORMATION
  Report Type: Spontaneous
  Country: US (occurrence: US)
  Receive Date: 20220914
  Receipt Date: 20220914
  Transmission Date: 20221026
  Serious: Yes (Hospitalization)
  Sender: FDA-Public Use
  Company Number: US-SUNPHARMA-2022R1-354418AA

PATIENT
  Age: 48 Year
  Sex: Male

DRUGS (7)
  1. BACLOFEN [Suspect]
     Active Substance: BACLOFEN
     Indication: Product used for unknown indication
     Dosage: 30 MILLIGRAM, DAILY
     Route: 065
  2. BUPRENORPHINE\NALOXONE [Suspect]
     Active Substance: BUPRENORPHINE\NALOXONE
     Indication: Product used for unknown indication
     Dosage: 2 MG/0.5 MG, TID
     Route: 065
  3. CLONAZEPAM [Suspect]
     Active Substance: CLONAZEPAM
     Indication: Product used for unknown indication
     Dosage: 2 MILLIGRAM, DAILY
     Route: 065
  4. GABAPENTIN [Suspect]
     Active Substance: GABAPENTIN
     Indication: Product used for unknown indication
     Dosage: 2400 MILLIGRAM, DAILY
     Route: 065
  5. METHYLPHENIDATE [Suspect]
     Active Substance: METHYLPHENIDATE
     Indication: Product used for unknown indication
     Dosage: 10 MILLIGRAM, DAILY
     Route: 065
  6. VENLAFAXINE [Suspect]
     Active Substance: VENLAFAXINE HYDROCHLORIDE
     Indication: Product used for unknown indication
     Dosage: 300 MILLIGRAM, DAILY
     Route: 065
  7. VENLAFAXINE [Suspect]
     Active Substance: VENLAFAXINE HYDROCHLORIDE
     Dosage: 150 MILLIGRAM, DAILY
     Route: 065

REACTIONS (3)
  - Condition aggravated [Unknown]
  - Drug ineffective [Unknown]
  - Suicidal ideation [Unknown]
